FAERS Safety Report 5832162-3 (Version None)
Quarter: 2008Q3

REPORT INFORMATION
  Report Type: 
  Country: None (occurrence: None)
  Receive Date: 20080731
  Receipt Date: 20080731
  Transmission Date: 20090109
  Serious: Yes (Hospitalization)
  Sender: FDA-Public Use
  Company Number: None

PATIENT
  Sex: Male
  Weight: 99.5 kg

DRUGS (2)
  1. DASATINIB [Suspect]
     Indication: SARCOMA
     Dosage: 70 MG BID PO
     Route: 048
     Dates: start: 20080708, end: 20080723
  2. DASATINIB [Suspect]
     Indication: SARCOMA
     Dosage: 50 MG BID PO
     Route: 048
     Dates: start: 20080723, end: 20080727

REACTIONS (14)
  - ABDOMINAL DISTENSION [None]
  - ABDOMINAL PAIN [None]
  - BRAIN OEDEMA [None]
  - CEREBRAL HAEMORRHAGE [None]
  - CHEST PAIN [None]
  - CONSTIPATION [None]
  - DYSPNOEA [None]
  - EAR PAIN [None]
  - HEADACHE [None]
  - INTRACRANIAL PRESSURE INCREASED [None]
  - MENINGIOMA [None]
  - METASTASES TO CENTRAL NERVOUS SYSTEM [None]
  - PLEURAL EFFUSION [None]
  - PULMONARY MASS [None]
